FAERS Safety Report 8422892-1 (Version None)
Quarter: 2012Q2

REPORT INFORMATION
  Report Type: 
  Country: None (occurrence: None)
  Receive Date: 20120608
  Receipt Date: 20120601
  Transmission Date: 20120825
  Serious: Yes (Hospitalization, Other)
  Sender: FDA-Public Use
  Company Number: US-GLAXOSMITHKLINE-A0958847A

PATIENT
  Age: 45 Year
  Sex: Male
  Weight: 118.2 kg

DRUGS (10)
  1. LASIX [Concomitant]
     Dosage: 60MG TWICE PER DAY
     Route: 065
  2. REVATIO [Concomitant]
     Dosage: 20MG THREE TIMES PER DAY
     Route: 065
  3. METOLAZONE [Concomitant]
  4. FLOLAN [Suspect]
     Indication: PULMONARY ARTERIAL HYPERTENSION
     Route: 042
     Dates: start: 20111128
  5. OXYGEN [Concomitant]
  6. ALDACTONE [Concomitant]
     Dosage: 25MG PER DAY
     Route: 065
  7. COREG [Concomitant]
  8. PROTONIX [Concomitant]
  9. NEURONTIN [Concomitant]
  10. TRACLEER [Concomitant]
     Dosage: 62.5MG TWICE PER DAY
     Route: 065

REACTIONS (6)
  - DECREASED APPETITE [None]
  - TACHYCARDIA [None]
  - HEADACHE [None]
  - NAUSEA [None]
  - WEIGHT INCREASED [None]
  - VOMITING [None]
